FAERS Safety Report 5688888-8 (Version None)
Quarter: 2008Q1

REPORT INFORMATION
  Report Type: 
  Country: None (occurrence: None)
  Receive Date: 20080331
  Receipt Date: 20080331
  Transmission Date: 20080703
  Serious: Yes (Other)
  Sender: FDA-Public Use
  Company Number: A0718245A

PATIENT
  Age: 35 Year
  Sex: Female
  Weight: 77 kg

DRUGS (3)
  1. ALLI [Suspect]
     Dates: start: 20080228, end: 20080316
  2. FIBERCON [Concomitant]
  3. FIBER [Concomitant]
     Indication: SUPPLEMENTATION THERAPY

REACTIONS (4)
  - CONSTIPATION [None]
  - PROCTALGIA [None]
  - RECTAL DISCHARGE [None]
  - RECTAL HAEMORRHAGE [None]
